FAERS Safety Report 16458635 (Version 1)
Quarter: 2019Q2

REPORT INFORMATION
  Report Type: Spontaneous
  Country: US (occurrence: US)
  Receive Date: 20190620
  Receipt Date: 20190620
  Transmission Date: 20190711
  Serious: No
  Sender: FDA-Public Use
  Company Number: US-THERAPEUTICSMD-2019TMD00557

PATIENT
  Age: 67 Year
  Sex: Female
  Weight: 58.96 kg

DRUGS (7)
  1. IMVEXXY [Suspect]
     Active Substance: ESTRADIOL
     Indication: VULVOVAGINAL DRYNESS
     Dosage: 4 ?G, 1X/DAY BEFORE BED
     Route: 067
     Dates: start: 20190327, end: 20190329
  2. VITAMIN D [Concomitant]
     Active Substance: VITAMIN D NOS
     Dosage: UNK
  3. VITAMIN K [Concomitant]
     Active Substance: PHYTONADIONE
  4. UNSPECIFIED CREAM WITH VITAMIN E [Concomitant]
  5. BEESWAX [Concomitant]
     Active Substance: YELLOW WAX
  6. MAGNESIUM [Concomitant]
     Active Substance: MAGNESIUM
     Dosage: UNK
  7. ALOE [Concomitant]
     Active Substance: ALOE
     Dosage: UNK

REACTIONS (5)
  - Vaginal haemorrhage [Recovered/Resolved]
  - Headache [Recovered/Resolved]
  - Off label use [Recovered/Resolved]
  - Vulvovaginal discomfort [Recovered/Resolved]
  - Urethral pain [Not Recovered/Not Resolved]

NARRATIVE: CASE EVENT DATE: 201903
